FAERS Safety Report 19202056 (Version 1)
Quarter: 2021Q2

REPORT INFORMATION
  Report Type: Report from Study
  Country: AU (occurrence: AU)
  Receive Date: 20210502
  Receipt Date: 20210502
  Transmission Date: 20210717
  Serious: Yes (Other)
  Sender: FDA-Public Use
  Company Number: NVSC2020AU336007

PATIENT
  Age: 8 Month
  Sex: Female
  Weight: 8.9 kg

DRUGS (3)
  1. PREDNISOLONE. [Concomitant]
     Active Substance: PREDNISOLONE
     Indication: PRODUCT USED FOR UNKNOWN INDICATION
     Dosage: 1 MG/KG
     Route: 065
     Dates: start: 20201207, end: 20201215
  2. PREDNISOLONE. [Concomitant]
     Active Substance: PREDNISOLONE
     Dosage: 1.5 MG/KG
     Route: 065
     Dates: start: 20201216
  3. ZOLGENSMA [Suspect]
     Active Substance: ONASEMNOGENE ABEPARVOVEC-XIOI
     Indication: SPINAL MUSCULAR ATROPHY
     Dosage: 46.8 ML
     Route: 042
     Dates: start: 20201208

REACTIONS (5)
  - Troponin I increased [Recovered/Resolved]
  - Haematocrit increased [Unknown]
  - Transaminases increased [Not Recovered/Not Resolved]
  - Thrombocytopenia [Not Recovered/Not Resolved]
  - Vomiting [Not Recovered/Not Resolved]

NARRATIVE: CASE EVENT DATE: 20201215
